FAERS Safety Report 17663761 (Version 2)
Quarter: 2022Q3

REPORT INFORMATION
  Report Type: Spontaneous
  Country: CN (occurrence: CN)
  Receive Date: 20200414
  Receipt Date: 20220823
  Transmission Date: 20221027
  Serious: Yes (Other)
  Sender: FDA-Public Use
  Company Number: CN-SUN PHARMACEUTICAL INDUSTRIES LTD-2020R1-242892

PATIENT
  Age: 55 Year
  Sex: Female

DRUGS (4)
  1. AFATINIB [Suspect]
     Active Substance: AFATINIB
     Indication: EGFR gene mutation
     Dosage: 40 MILLIGRAM, DAILY
     Route: 065
     Dates: start: 20190605
  2. AFATINIB [Suspect]
     Active Substance: AFATINIB
     Dosage: 30 MILLIGRAM, DAILY
     Route: 065
  3. AFATINIB [Suspect]
     Active Substance: AFATINIB
     Dosage: 20 MILLIGRAM, DAILY
     Route: 065
  4. OSIMERTINIB [Concomitant]
     Active Substance: OSIMERTINIB
     Indication: EGFR gene mutation
     Dosage: UNK
     Route: 065

REACTIONS (1)
  - Skin toxicity [Unknown]
